FAERS Safety Report 10820584 (Version 1)
Quarter: 2015Q1

REPORT INFORMATION
  Report Type: Report from Study
  Country: US (occurrence: US)
  Receive Date: 20150218
  Receipt Date: 20150218
  Transmission Date: 20150721
  Serious: No
  Sender: FDA-Public Use
  Company Number: US-ABBVIE-14K-163-1300710-00

PATIENT
  Age: 56 Year
  Sex: Female
  Weight: 68.1 kg

DRUGS (14)
  1. PLAQUENIL [Concomitant]
     Active Substance: HYDROXYCHLOROQUINE SULFATE
     Indication: RHEUMATOID ARTHRITIS
  2. ALBUTEROL. [Concomitant]
     Active Substance: ALBUTEROL
     Indication: ASTHMA
  3. ATROVENT [Concomitant]
     Active Substance: IPRATROPIUM BROMIDE
     Indication: ASTHMA
  4. ASTELIN [Concomitant]
     Active Substance: AZELASTINE HYDROCHLORIDE
     Indication: HYPERSENSITIVITY
  5. ADVAIR HFA [Concomitant]
     Active Substance: FLUTICASONE PROPIONATE\SALMETEROL XINAFOATE
     Indication: ASTHMA
  6. RESTASIS [Concomitant]
     Active Substance: CYCLOSPORINE
     Indication: SJOGREN^S SYNDROME
  7. COUMADIN [Concomitant]
     Active Substance: WARFARIN SODIUM
     Indication: PROTEIN DEFICIENCY
  8. RANITIDINE [Concomitant]
     Active Substance: RANITIDINE\RANITIDINE HYDROCHLORIDE
     Indication: GASTROOESOPHAGEAL REFLUX DISEASE
  9. ACYCLOVIR. [Concomitant]
     Active Substance: ACYCLOVIR
     Indication: HERPES VIRUS INFECTION
  10. ERYTHROMYCIN. [Concomitant]
     Active Substance: ERYTHROMYCIN
     Indication: SJOGREN^S SYNDROME
  11. ESTROGEL [Concomitant]
     Active Substance: ESTRADIOL
     Indication: HORMONE REPLACEMENT THERAPY
  12. HUMIRA [Suspect]
     Active Substance: ADALIMUMAB
     Indication: RHEUMATOID ARTHRITIS
     Route: 065
     Dates: start: 201401, end: 201409
  13. HUMIRA [Suspect]
     Active Substance: ADALIMUMAB
     Route: 065
     Dates: start: 201409
  14. PROTONIX [Concomitant]
     Active Substance: PANTOPRAZOLE SODIUM
     Indication: GASTROOESOPHAGEAL REFLUX DISEASE

REACTIONS (5)
  - Fluid retention [Not Recovered/Not Resolved]
  - Dyspnoea [Not Recovered/Not Resolved]
  - Arthralgia [Not Recovered/Not Resolved]
  - Weight increased [Unknown]
  - Hiatus hernia [Not Recovered/Not Resolved]

NARRATIVE: CASE EVENT DATE: 2014
